FAERS Safety Report 10155053 (Version 1)
Quarter: 2014Q2

REPORT INFORMATION
  Report Type: Spontaneous
  Country: US (occurrence: US)
  Receive Date: 20140506
  Receipt Date: 20140506
  Transmission Date: 20141212
  Serious: No
  Sender: FDA-Public Use
  Company Number: US-009507513-1404USA015293

PATIENT
  Sex: Male

DRUGS (2)
  1. ZETIA [Suspect]
     Indication: BLOOD CHOLESTEROL ABNORMAL
     Dosage: UNK
     Route: 048
     Dates: start: 201403
  2. LIPITOR [Concomitant]
     Dosage: UNK

REACTIONS (3)
  - Jaundice [Recovering/Resolving]
  - Fatigue [Recovering/Resolving]
  - Liver function test abnormal [Recovering/Resolving]
